FAERS Safety Report 4311484-1 (Version None)
Quarter: 2004Q1

REPORT INFORMATION
  Report Type: 
  Country: None (occurrence: None)
  Receive Date: 20040303
  Receipt Date: 20040303
  Transmission Date: 20041129
  Serious: Yes (Life-Threatening)
  Sender: FDA-Public Use
  Company Number: None

PATIENT
  Age: 34 Year
  Sex: Male
  Weight: 99.7913 kg

DRUGS (2)
  1. STRATTERA [Suspect]
     Indication: DEPRESSION
     Dosage: 20MG 2/DAY ORAL
     Route: 048
     Dates: start: 20030601, end: 20030609
  2. STRATTERA [Suspect]
     Indication: OBSESSIVE-COMPULSIVE DISORDER
     Dosage: 20MG 2/DAY ORAL
     Route: 048
     Dates: start: 20030601, end: 20030609

REACTIONS (2)
  - PERSONALITY CHANGE [None]
  - SUICIDAL IDEATION [None]
